FAERS Safety Report 6094097-3 (Version None)
Quarter: 2009Q1

REPORT INFORMATION
  Report Type: 
  Country: None (occurrence: None)
  Receive Date: 20090223
  Receipt Date: 20090209
  Transmission Date: 20090719
  Serious: Yes (Other)
  Sender: FDA-Public Use
  Company Number: GB-DEXPHARM-20090172

PATIENT
  Age: 56 Year
  Sex: Female

DRUGS (5)
  1. SAVLON [Suspect]
     Indication: HERPES SIMPLEX
     Dosage: 1 DF DOSAGE FORM {1 DF DOSAGE FORM} TOPICAL
     Route: 061
     Dates: start: 20060301, end: 20060301
  2. SAVLON [Suspect]
     Indication: HERPES SIMPLEX
     Dosage: 1 DF DOSAGE FORM {1 DF DOSAGE FORM} TOPICAL
     Route: 061
     Dates: start: 20060301, end: 20060301
  3. CHLORPROMAZINE [Concomitant]
  4. DICLOFENAC [Concomitant]
  5. MORPHINE SULFATE [Concomitant]

REACTIONS (7)
  - BURNING SENSATION [None]
  - CELLULITIS [None]
  - CONDITION AGGRAVATED [None]
  - DRY SKIN [None]
  - HYPERSENSITIVITY [None]
  - INFECTION [None]
  - ORAL HERPES [None]
